FAERS Safety Report 9775351 (Version 3)
Quarter: 2014Q1

REPORT INFORMATION
  Report Type: Spontaneous
  Country: US (occurrence: US)
  Receive Date: 20131220
  Receipt Date: 20140321
  Transmission Date: 20141002
  Serious: Yes (Death, Hospitalization, Other)
  Sender: FDA-Public Use
  Company Number: US-PFIZER INC-2013130077

PATIENT
  Age: 22 Year
  Sex: Male

DRUGS (2)
  1. DILANTIN [Suspect]
     Indication: CONVULSION
     Dosage: 100MG/2ML, 3X/DAY
     Route: 042
     Dates: start: 20040201
  2. DILANTIN [Suspect]
     Indication: CONVULSION
     Dosage: 300 MG, (100MG MORNING AND 200MG EVERY NIGHT)
     Route: 048
     Dates: start: 20040205, end: 20040228

REACTIONS (1)
  - Stevens-Johnson syndrome [Fatal]
